FAERS Safety Report 19951738 (Version 2)
Quarter: 2021Q4

REPORT INFORMATION
  Report Type: Report from Study
  Country: ZA (occurrence: ZA)
  Receive Date: 20211013
  Receipt Date: 20211129
  Transmission Date: 20220303
  Serious: Yes (Hospitalization, Other)
  Sender: FDA-Public Use
  Company Number: ZA-ABBVIE-21K-143-4112861-00

PATIENT
  Age: 55 Year
  Sex: Male

DRUGS (1)
  1. HUMIRA [Suspect]
     Active Substance: ADALIMUMAB
     Indication: Psoriatic arthropathy
     Route: 058
     Dates: start: 2019

REACTIONS (8)
  - Spinal operation [Recovering/Resolving]
  - Spinal fusion surgery [Recovered/Resolved]
  - Psoriatic arthropathy [Recovered/Resolved]
  - Spinal cord infection [Unknown]
  - Incision site swelling [Recovering/Resolving]
  - Gait inability [Recovering/Resolving]
  - Back pain [Unknown]
  - Drug ineffective [Recovered/Resolved]

NARRATIVE: CASE EVENT DATE: 20210901
